FAERS Safety Report 20492766 (Version 2)
Quarter: 2022Q2

REPORT INFORMATION
  Report Type: Report from Study
  Country: MX (occurrence: MX)
  Receive Date: 20220219
  Receipt Date: 20220408
  Transmission Date: 20220721
  Serious: Yes (Other)
  Sender: FDA-Public Use
  Company Number: MX-NOVARTISPH-NVSC2022MX038466

PATIENT
  Sex: Female

DRUGS (1)
  1. EXELON [Suspect]
     Active Substance: RIVASTIGMINE TARTRATE
     Indication: Mixed dementia
     Dosage: UNK (STARTED APPROXIMATELY 6 MONTHS AGO)
     Route: 065

REACTIONS (4)
  - Neurogenic bladder [Unknown]
  - Infection [Unknown]
  - Malaise [Unknown]
  - Off label use [Unknown]
